FAERS Safety Report 8289739 (Version 2)
Quarter: 2014Q2

REPORT INFORMATION
  Report Type: Spontaneous
  Country: US (occurrence: US)
  Receive Date: 20111214
  Receipt Date: 20140602
  Transmission Date: 20141212
  Serious: No
  Sender: FDA-Public Use
  Company Number: US-AMGEN-USASP2011057853

PATIENT
  Age: 43 Year
  Sex: Male

DRUGS (5)
  1. ENBREL [Suspect]
     Indication: RHEUMATOID ARTHRITIS
     Dosage: 50 MG, QWK
     Route: 058
     Dates: start: 20100827
  2. ENBREL [Suspect]
     Indication: PSORIASIS
     Route: 065
  3. ENBREL [Suspect]
     Indication: PSORIATIC ARTHROPATHY
  4. POTASSIUM [Concomitant]
     Dosage: UNK
     Dates: start: 20100812
  5. ULTRAM [Concomitant]
     Dosage: UNK
     Dates: start: 20100812

REACTIONS (8)
  - Stress [Not Recovered/Not Resolved]
  - Overdose [Recovered/Resolved]
  - Anxiety [Unknown]
  - Chest pain [Unknown]
  - Psoriasis [Not Recovered/Not Resolved]
  - Injection site pain [Recovered/Resolved]
  - Injection site erythema [Unknown]
  - Injection site irritation [Unknown]
